FAERS Safety Report 11720564 (Version 1)
Quarter: 2015Q4

REPORT INFORMATION
  Report Type: Spontaneous
  Country: US (occurrence: US)
  Receive Date: 20151110
  Receipt Date: 20151110
  Transmission Date: 20160304
  Serious: Yes (Other)
  Sender: FDA-Public Use
  Company Number: US-TEVA-606947USA

PATIENT
  Age: 45 Year
  Sex: Female

DRUGS (2)
  1. MAXALT [Concomitant]
     Active Substance: RIZATRIPTAN BENZOATE
  2. ZECUITY [Suspect]
     Active Substance: SUMATRIPTAN SUCCINATE
     Route: 062
     Dates: start: 20151030

REACTIONS (4)
  - Headache [Unknown]
  - Application site discolouration [Unknown]
  - Application site bruise [Unknown]
  - Application site burn [Recovering/Resolving]

NARRATIVE: CASE EVENT DATE: 20151030
